FAERS Safety Report 11776845 (Version 1)
Quarter: 2015Q4

REPORT INFORMATION
  Report Type: Other
  Country: FR (occurrence: FR)
  Receive Date: 20151125
  Receipt Date: 20151125
  Transmission Date: 20160304
  Serious: Yes (Life-Threatening)
  Sender: FDA-Public Use
  Company Number: FR-ASTELLAS-2015US043845

PATIENT
  Age: 53 Year
  Sex: Female

DRUGS (2)
  1. CELLCEPT [Suspect]
     Active Substance: MYCOPHENOLATE MOFETIL\MYCOPHENOLATE MOFETIL HYDROCHLORIDE
     Indication: RENAL TRANSPLANT
     Route: 048
     Dates: start: 2001, end: 201508
  2. PROGRAF [Suspect]
     Active Substance: TACROLIMUS\TACROLIMUS ANHYDROUS
     Indication: RENAL TRANSPLANT
     Dosage: 1.5 MG IN THE MORNING AND 2 MG IN THE EVENING
     Route: 048
     Dates: start: 2001, end: 201508

REACTIONS (2)
  - Leukoencephalopathy [Unknown]
  - Status epilepticus [Unknown]

NARRATIVE: CASE EVENT DATE: 201508
